FAERS Safety Report 7698998-1 (Version None)
Quarter: 2011Q3

REPORT INFORMATION
  Report Type: 
  Country: None (occurrence: None)
  Receive Date: 20110819
  Receipt Date: 20110812
  Transmission Date: 20111222
  Serious: Yes (Hospitalization)
  Sender: FDA-Public Use
  Company Number: US-ABBOTT-11P-163-0847393-00

PATIENT
  Age: 24 Year
  Sex: Female

DRUGS (9)
  1. HUMIRA [Suspect]
     Dates: start: 20110701
  2. HUMIRA [Suspect]
     Dates: start: 20100801, end: 20100801
  3. HUMIRA [Suspect]
     Indication: CROHN'S DISEASE
     Dosage: 160MG LOADING DOSE (DIVIDED INTO 2 DAYS)
     Dates: start: 20070701, end: 20100701
  4. JOLESSA [Concomitant]
     Indication: ORAL CONTRACEPTION
  5. HUMIRA [Suspect]
     Dates: start: 20100801, end: 20110601
  6. MULTI-VITAMINS [Concomitant]
     Indication: VITAMIN SUPPLEMENTATION
  7. ENTOCORT EC [Concomitant]
     Indication: PRODUCT USED FOR UNKNOWN INDICATION
  8. ATIVAN [Concomitant]
     Indication: ANXIETY
  9. VICODIN [Concomitant]
     Indication: PAIN

REACTIONS (7)
  - CLOSTRIDIAL INFECTION [None]
  - FEELING HOT [None]
  - ABSCESS [None]
  - INTESTINAL STENOSIS [None]
  - CROHN'S DISEASE [None]
  - FISTULA [None]
  - RASH [None]
